FAERS Safety Report 11100741 (Version 4)
Quarter: 2018Q3

REPORT INFORMATION
  Report Type: Report from Study
  Country: TH (occurrence: TH)
  Receive Date: 20150508
  Receipt Date: 20180727
  Transmission Date: 20181010
  Serious: Yes (Other)
  Sender: FDA-Public Use
  Company Number: PHHO2015TH007540

PATIENT
  Age: 50 Year
  Sex: Female
  Weight: 60 kg

DRUGS (18)
  1. AIN457 [Suspect]
     Active Substance: SECUKINUMAB
     Dosage: 75 MG, QMO
     Route: 058
     Dates: start: 20140508
  2. PREDSOMED [Suspect]
     Active Substance: PREDNISOLONE
     Dosage: 52.5 MG, QW
     Route: 048
     Dates: start: 20130404, end: 20130724
  3. PREDSOMED [Suspect]
     Active Substance: PREDNISOLONE
     Dosage: 47.5 MG, QW
     Route: 048
     Dates: start: 20130725, end: 20131113
  4. PREDSOMED [Suspect]
     Active Substance: PREDNISOLONE
     Dosage: 46.3 MG, QW
     Route: 048
     Dates: start: 20140313, end: 20140402
  5. PREDSOMED [Suspect]
     Active Substance: PREDNISOLONE
     Dosage: 47.5 MG, QW
     Route: 048
     Dates: start: 20140821
  6. PREDSOMED [Suspect]
     Active Substance: PREDNISOLONE
     Dosage: 7.5MG QD (MNDAY?FRIDAY) AND 5MG QD ON SATURDAY AND SUNDAY
     Route: 048
  7. AIN457 [Suspect]
     Active Substance: SECUKINUMAB
     Indication: PSORIATIC ARTHROPATHY
     Dosage: 150 MG, WEEK 24
     Route: 058
  8. PLACEBO [Suspect]
     Active Substance: UNSPECIFIED INGREDIENT
     Indication: PSORIATIC ARTHROPATHY
     Dosage: WEEK 8
     Route: 058
     Dates: start: 20120303
  9. PREDSOMED [Suspect]
     Active Substance: PREDNISOLONE
     Dosage: 62.5 MG, QW
     Route: 048
     Dates: start: 20130214, end: 20130403
  10. PREDSOMED [Suspect]
     Active Substance: PREDNISOLONE
     Dosage: 46.5 MG, QW
     Route: 048
     Dates: start: 20130725, end: 20140312
  11. PREDSOMED [Suspect]
     Active Substance: PREDNISOLONE
     Dosage: 41 MG, QW
     Route: 048
     Dates: start: 20140403, end: 20140507
  12. AIN457 [Suspect]
     Active Substance: SECUKINUMAB
     Indication: PSORIATIC ARTHROPATHY
     Dosage: 75 MG/0.5 ML
     Route: 058
  13. METHOTREXATE REMEDICA//METHOTREXATE [Suspect]
     Active Substance: METHOTREXATE
     Dosage: 15 MG, QW
     Route: 048
     Dates: start: 20150513
  14. PREDSOMED [Suspect]
     Active Substance: PREDNISOLONE
     Indication: PSORIATIC ARTHROPATHY
     Dosage: 5 MG, BID
     Route: 048
     Dates: start: 20070529, end: 20130213
  15. PREDSOMED [Suspect]
     Active Substance: PREDNISOLONE
     Dosage: 40.8 MG, QW
     Route: 048
     Dates: start: 20140508, end: 20140625
  16. PREDSOMED [Suspect]
     Active Substance: PREDNISOLONE
     Dosage: 40.5 MG, QW
     Route: 048
     Dates: start: 20140626, end: 20140820
  17. PLACEBO [Suspect]
     Active Substance: UNSPECIFIED INGREDIENT
     Dosage: PLACEBO/0.5 ML
     Route: 058
  18. METHOTREXATE REMEDICA//METHOTREXATE [Suspect]
     Active Substance: METHOTREXATE
     Indication: PSORIATIC ARTHROPATHY
     Dosage: 15 MG, QW
     Route: 048
     Dates: start: 20120124, end: 20150429

REACTIONS (1)
  - Cellulitis [Recovered/Resolved]

NARRATIVE: CASE EVENT DATE: 20150427
